FAERS Safety Report 4902300-5 (Version None)
Quarter: 2006Q1

REPORT INFORMATION
  Report Type: 
  Country: None (occurrence: None)
  Receive Date: 20060202
  Receipt Date: 20060202
  Transmission Date: 20060701
  Serious: Yes (Hospitalization)
  Sender: FDA-Public Use
  Company Number: None

PATIENT
  Age: 52 Year
  Sex: Male
  Weight: 71.2147 kg

DRUGS (3)
  1. ACETAMINOPHEN [Suspect]
     Indication: MUSCULOSKELETAL CHEST PAIN
     Dates: start: 20051223, end: 20060119
  2. ACETAMINOPHEN [Suspect]
     Indication: ROAD TRAFFIC ACCIDENT
     Dates: start: 20051223, end: 20060119
  3. ACETAMINOPHEN AND HYDROCODONE BITARTRATE [Suspect]

REACTIONS (4)
  - ABDOMINAL PAIN [None]
  - ASCITES [None]
  - JAUNDICE [None]
  - LIVER FUNCTION TEST ABNORMAL [None]
